FAERS Safety Report 8289470-9 (Version None)
Quarter: 2012Q2

REPORT INFORMATION
  Report Type: 
  Country: None (occurrence: None)
  Receive Date: 20120417
  Receipt Date: 20120413
  Transmission Date: 20120825
  Serious: Yes (Other)
  Sender: FDA-Public Use
  Company Number: BR-SANOFI-AVENTIS-2011SA049025

PATIENT
  Age: 30 Year
  Sex: Female
  Weight: 72 kg

DRUGS (5)
  1. MULTI-VITAMINS [Concomitant]
     Indication: NUTRITIONAL SUPPORT
     Route: 048
     Dates: start: 20110201
  2. BROMOPRIDE [Concomitant]
     Route: 048
     Dates: end: 20110919
  3. SOLOSTAR [Suspect]
     Indication: DEVICE THERAPY
     Dates: start: 20110301
  4. APIDRA SOLOSTAR [Suspect]
     Indication: TYPE 1 DIABETES MELLITUS
     Dosage: 4 IU BEFORE BREAKFAST, 12IU BEFORE LUNCH, 8IU BEFORE SNACK TIME AND 8IU BEFORE DINNER.
     Route: 058
     Dates: start: 20110301
  5. NPH INSULIN [Concomitant]
     Route: 058

REACTIONS (3)
  - EXPOSURE DURING BREAST FEEDING [None]
  - LARGE FOR DATES BABY [None]
  - MATERNAL EXPOSURE TIMING UNSPECIFIED [None]
